FAERS Safety Report 12913086 (Version 1)
Quarter: 2016Q4

REPORT INFORMATION
  Report Type: Spontaneous
  Country: SA (occurrence: SA)
  Receive Date: 20161104
  Receipt Date: 20161104
  Transmission Date: 20170207
  Serious: Yes (Death, Hospitalization, Other)
  Sender: FDA-Public Use
  Company Number: PHHY2016SA119047

PATIENT
  Age: 61 Year
  Sex: Male

DRUGS (1)
  1. TASIGNA [Suspect]
     Active Substance: NILOTINIB
     Indication: CHRONIC MYELOID LEUKAEMIA
     Dosage: 300 MG, BID
     Route: 065
     Dates: start: 201603, end: 20160803

REACTIONS (8)
  - Cardiac failure [Fatal]
  - Chest pain [Fatal]
  - Dyspnoea [Fatal]
  - Pleural effusion [Unknown]
  - Pancytopenia [Unknown]
  - Lung adenocarcinoma metastatic [Unknown]
  - Myocardial infarction [Fatal]
  - Electrocardiogram QT prolonged [Unknown]

NARRATIVE: CASE EVENT DATE: 20160803
